FAERS Safety Report 5512531-1 (Version None)
Quarter: 2007Q4

REPORT INFORMATION
  Report Type: 
  Country: None (occurrence: None)
  Receive Date: 20071112
  Receipt Date: 20070628
  Transmission Date: 20080405
  Serious: No
  Sender: FDA-Public Use
  Company Number: A0660736A

PATIENT
  Age: 48 Year

DRUGS (2)
  1. AVANDAMET [Suspect]
     Route: 048
     Dates: start: 20070501
  2. UNSPECIFIED MEDICATIONS [Concomitant]

REACTIONS (2)
  - ARRHYTHMIA [None]
  - SOMNOLENCE [None]
